FAERS Safety Report 7404278-1 (Version None)
Quarter: 2011Q2

REPORT INFORMATION
  Report Type: 
  Country: None (occurrence: None)
  Receive Date: 20110408
  Receipt Date: 20110330
  Transmission Date: 20111010
  Serious: Yes (Hospitalization)
  Sender: FDA-Public Use
  Company Number: US-CEPHALON-2011001509

PATIENT
  Age: 78 Year
  Sex: Male

DRUGS (6)
  1. FENTANYL [Suspect]
     Route: 062
  2. ANTICONVULSANT [Concomitant]
  3. LEUKOTRIENE ANTAGONIST/INHIBITOR [Concomitant]
  4. FENTANYL CITRATE [Suspect]
     Route: 002
  5. METHADONE [Suspect]
  6. DOXEPIN [Concomitant]

REACTIONS (5)
  - SUICIDE ATTEMPT [None]
  - UNRESPONSIVE TO STIMULI [None]
  - CONFUSIONAL STATE [None]
  - OVERDOSE [None]
  - SOMNOLENCE [None]
